FAERS Safety Report 7742743-8 (Version None)
Quarter: 2011Q3

REPORT INFORMATION
  Report Type: 
  Country: None (occurrence: None)
  Receive Date: 20110912
  Receipt Date: 20110901
  Transmission Date: 20111222
  Serious: Yes (Other)
  Sender: FDA-Public Use
  Company Number: US-JNJFOC-20110901900

PATIENT
  Sex: Female
  Weight: 54.43 kg

DRUGS (4)
  1. METHOTREXATE [Concomitant]
     Indication: CROHN'S DISEASE
     Route: 058
     Dates: start: 20110301
  2. FOLIC ACID [Concomitant]
     Indication: CROHN'S DISEASE
     Route: 048
     Dates: start: 20110301
  3. DICLOFENAC SODIUM [Concomitant]
     Indication: PAIN
     Route: 048
  4. REMICADE [Suspect]
     Indication: CROHN'S DISEASE
     Route: 042
     Dates: start: 20110501

REACTIONS (3)
  - VISION BLURRED [None]
  - VIRAL INFECTION [None]
  - VISUAL IMPAIRMENT [None]
